FAERS Safety Report 9162513 (Version 1)
Quarter: 2013Q1

REPORT INFORMATION
  Report Type: Spontaneous
  Country: US (occurrence: None)
  Receive Date: 20130222
  Receipt Date: 20130222
  Transmission Date: 20140127
  Serious: Yes (Hospitalization)
  Sender: FDA-Public Use
  Company Number: 2013AP002712

PATIENT
  Age: 34 Year
  Sex: Male

DRUGS (6)
  1. LISINOPRIL TABLETS [Suspect]
     Indication: PRODUCT USED FOR UNKNOWN INDICATION
     Route: 048
  2. LEVETIRACETAM [Suspect]
     Indication: CONVULSION PROPHYLAXIS
  3. PHENYTOIN [Suspect]
     Indication: CONVULSION PROPHYLAXIS
     Route: 048
  4. FOSPHENYTOIN [Concomitant]
  5. DEXAMETHASONE [Concomitant]
  6. PARACETAMOL [Concomitant]

REACTIONS (4)
  - Drug reaction with eosinophilia and systemic symptoms [None]
  - Angioedema [None]
  - Dysphagia [None]
  - Transaminases increased [None]
